FAERS Safety Report 11603306 (Version 1)
Quarter: 2015Q4

REPORT INFORMATION
  Report Type: Spontaneous
  Country: US (occurrence: None)
  Receive Date: 20151005
  Receipt Date: 20151005
  Transmission Date: 20160304
  Serious: No
  Sender: FDA-Public Use
  Company Number: None

PATIENT
  Age: 85 Year
  Sex: Male

DRUGS (13)
  1. OMEPRAZOLE. [Concomitant]
     Active Substance: OMEPRAZOLE
  2. CARVEDILOL. [Concomitant]
     Active Substance: CARVEDILOL
  3. GABAPENTIN. [Concomitant]
     Active Substance: GABAPENTIN
  4. COLCRYS [Concomitant]
     Active Substance: COLCHICINE
  5. CARAFATE [Concomitant]
     Active Substance: SUCRALFATE
  6. DEXAMETHASON [Concomitant]
     Active Substance: DEXAMETHASONE
  7. LISINOPRIL. [Concomitant]
     Active Substance: LISINOPRIL
  8. SODIUM BICAR [Concomitant]
  9. CIPROFLOXACN [Concomitant]
     Active Substance: CIPROFLOXACIN
  10. PROMACTA [Suspect]
     Active Substance: ELTROMBOPAG OLAMINE
     Indication: THROMBOCYTOPENIA
     Route: 048
     Dates: start: 201204, end: 201508
  11. AMLODIPINE [Concomitant]
     Active Substance: AMLODIPINE BESYLATE
  12. SPIRONOLACT [Concomitant]
  13. FUROSEMIDE. [Concomitant]
     Active Substance: FUROSEMIDE

REACTIONS (1)
  - Haematemesis [None]

NARRATIVE: CASE EVENT DATE: 201508
